FAERS Safety Report 5301928-0 (Version None)
Quarter: 2007Q2

REPORT INFORMATION
  Report Type: 
  Country: None (occurrence: None)
  Receive Date: 20070419
  Receipt Date: 20070410
  Transmission Date: 20071010
  Serious: Yes (Hospitalization, Other)
  Sender: FDA-Public Use
  Company Number: 2007AC00434

PATIENT
  Sex: Female
  Weight: 42 kg

DRUGS (5)
  1. LOSEC [Suspect]
     Indication: GASTROOESOPHAGEAL REFLUX DISEASE
     Route: 048
     Dates: start: 20060901, end: 20070301
  2. LOSEC [Suspect]
     Route: 048
     Dates: start: 20070301
  3. LOGASTRIC [Suspect]
     Indication: GASTROOESOPHAGEAL REFLUX DISEASE
     Route: 048
     Dates: start: 20060401, end: 20060901
  4. PENTASA [Concomitant]
     Indication: COLITIS
     Route: 048
     Dates: start: 20060701
  5. CYMBALTA [Concomitant]
     Indication: DEPRESSION
     Route: 048
     Dates: start: 20060701

REACTIONS (2)
  - COLITIS COLLAGENOUS [None]
  - DIARRHOEA [None]
